FAERS Safety Report 9056984 (Version 1)
Quarter: 2013Q1

REPORT INFORMATION
  Report Type: Report from Study
  Country: US (occurrence: US)
  Receive Date: 20130131
  Receipt Date: 20130131
  Transmission Date: 20140127
  Serious: No
  Sender: FDA-Public Use
  Company Number: US-ABBOTT-12P-163-0992014-00

PATIENT
  Age: 58 Year
  Sex: Female

DRUGS (14)
  1. HUMIRA [Suspect]
     Indication: PSORIATIC ARTHROPATHY
     Dosage: INITIAL DOSE
     Dates: start: 20121004
  2. DIOVAN [Concomitant]
     Indication: HYPERTENSION
     Dosage: 160/12.5 MG
  3. PREDNISONE [Concomitant]
     Indication: ARTHRITIS
  4. AMBIEN [Concomitant]
     Indication: INSOMNIA
     Dosage: AT NIGHT
  5. TRAZODONE [Concomitant]
     Indication: DEPRESSION
     Dosage: ONE OR TWO AT NIGHT
  6. CYMBALTA [Concomitant]
     Indication: DEPRESSION
     Dosage: AT NIGHT
  7. PREVACID [Concomitant]
     Indication: GASTROOESOPHAGEAL REFLUX DISEASE
  8. GABAPENTIN [Concomitant]
     Indication: MUSCLE SPASMS
  9. JANUVIA [Concomitant]
     Indication: DIABETES MELLITUS
     Dosage: DAILY
  10. METHOTREXATE [Concomitant]
     Indication: ARTHRITIS
  11. GLIMEPIRIDE [Concomitant]
     Indication: DIABETES MELLITUS
  12. SYNTHROID [Concomitant]
     Indication: HYPOTHYROIDISM
  13. NOVLOG FLEX PEN [Concomitant]
     Indication: PRODUCT USED FOR UNKNOWN INDICATION
     Dosage: 8-12 UNITS, DEPENDING ON BLOOD SUGAR RESULTS (3-4 TIMES DAILY)
  14. LANTUS SOLOSTAR PEN [Concomitant]
     Indication: PRODUCT USED FOR UNKNOWN INDICATION
     Dosage: AT NIGHT

REACTIONS (1)
  - Injection site pain [Recovered/Resolved]
